FAERS Safety Report 7052387-1 (Version None)
Quarter: 2010Q4

REPORT INFORMATION
  Report Type: 
  Country: None (occurrence: None)
  Receive Date: 20101019
  Receipt Date: 20101012
  Transmission Date: 20110411
  Serious: Yes (Life-Threatening, Hospitalization)
  Sender: FDA-Public Use
  Company Number: DE-BAYER-201042067GPV

PATIENT
  Age: 4 Week
  Sex: Female
  Weight: 0.9 kg

DRUGS (7)
  1. CIPRO [Suspect]
     Indication: STAPHYLOCOCCAL SEPSIS
     Dosage: UNIT DOSE: 7.4 MG
     Dates: start: 20100806, end: 20100816
  2. LINEZOLID [Suspect]
     Indication: STAPHYLOCOCCAL SEPSIS
     Dosage: UNIT DOSE: 7.4 MG
     Dates: start: 20100806, end: 20100816
  3. PHENOBARBITAL [Concomitant]
     Dosage: UNIT DOSE: 2 MG
     Route: 042
  4. COFFEIN [Concomitant]
     Route: 048
  5. DIFLUCAN [Concomitant]
     Route: 048
  6. URSO FALK [Concomitant]
     Route: 048
  7. NERVIFENE [Concomitant]

REACTIONS (6)
  - CARDIOVASCULAR INSUFFICIENCY [None]
  - HAEMOGLOBIN DECREASED [None]
  - HAEMORRHAGE SUBCUTANEOUS [None]
  - HYPOVOLAEMIC SHOCK [None]
  - METABOLIC ACIDOSIS [None]
  - RESPIRATORY ACIDOSIS [None]
